FAERS Safety Report 8916398 (Version 1)
Quarter: 2012Q4

REPORT INFORMATION
  Report Type: 
  Country: US (occurrence: US)
  Receive Date: 20121120
  Receipt Date: 20121120
  Transmission Date: 20130627
  Serious: No
  Sender: FDA-Public Use
  Company Number: US-B.I. PHARMACEUTICALS,INC./RIDGEFIELD-2012-BI-00649BP

PATIENT
  Age: 86 Year
  Sex: Female
  Weight: 72 kg

DRUGS (4)
  1. PRADAXA [Suspect]
     Indication: ATRIAL FIBRILLATION
     Dosage: 300 mg
     Route: 048
     Dates: start: 201104, end: 201211
  2. ATENOLOL [Concomitant]
     Indication: HYPERTENSION
     Dosage: 12.5 mg
     Route: 048
  3. LISINOPRIL [Concomitant]
     Indication: HYPERTENSION
     Route: 048
  4. AMIODARONE [Concomitant]
     Indication: CARDIAC DISORDER
     Dosage: 200 mg
     Route: 048

REACTIONS (1)
  - Renal function test abnormal [Not Recovered/Not Resolved]
